FAERS Safety Report 8623618-9 (Version None)
Quarter: 2012Q3

REPORT INFORMATION
  Report Type: 
  Country: None (occurrence: None)
  Receive Date: 20120827
  Receipt Date: 20120815
  Transmission Date: 20120928
  Serious: Yes (Other)
  Sender: FDA-Public Use
  Company Number: DE-ELI_LILLY_AND_COMPANY-DE201208004720

PATIENT
  Sex: Female

DRUGS (4)
  1. NOVALGIN                           /06276704/ [Concomitant]
     Dosage: UNK, UNKNOWN
     Route: 065
  2. FORTEO [Suspect]
     Indication: OSTEOPOROSIS
     Dosage: UNK, QD
     Route: 058
     Dates: start: 20110801
  3. ANTIPSYCHOTICS [Concomitant]
     Dosage: UNK, UNKNOWN
     Route: 065
  4. ARCOXIA [Concomitant]
     Dosage: UNK, UNKNOWN
     Route: 065

REACTIONS (3)
  - NAUSEA [None]
  - PUBIS FRACTURE [None]
  - MALAISE [None]
